FAERS Safety Report 26102388 (Version 2)
Quarter: 2025Q4

REPORT INFORMATION
  Report Type: Spontaneous
  Country: EU (occurrence: EU)
  Receive Date: 20251128
  Receipt Date: 20251203
  Transmission Date: 20260118
  Serious: Yes (Other)
  Sender: MYLAN
  Company Number: None

PATIENT
  Age: 29 Year
  Sex: Female
  Weight: 70.3 kg

DRUGS (56)
  1. CLOZAPINE [Interacting]
     Active Substance: CLOZAPINE
     Indication: Product used for unknown indication
     Dosage: 2 DOSAGE FORM, QD (IN THE EVENING 2 TABLETS)
     Dates: start: 20251013
  2. CLOZAPINE [Interacting]
     Active Substance: CLOZAPINE
     Dosage: 2 DOSAGE FORM, QD (IN THE EVENING 2 TABLETS)
     Dates: start: 20251013
  3. CLOZAPINE [Interacting]
     Active Substance: CLOZAPINE
     Dosage: 2 DOSAGE FORM, QD (IN THE EVENING 2 TABLETS)
     Route: 048
     Dates: start: 20251013
  4. CLOZAPINE [Interacting]
     Active Substance: CLOZAPINE
     Dosage: 2 DOSAGE FORM, QD (IN THE EVENING 2 TABLETS)
     Route: 048
     Dates: start: 20251013
  5. CLOZAPINE [Interacting]
     Active Substance: CLOZAPINE
     Dosage: 175 MILLIGRAM, QD (0-0-1)
     Dates: start: 20251013
  6. CLOZAPINE [Interacting]
     Active Substance: CLOZAPINE
     Dosage: 175 MILLIGRAM, QD (0-0-1)
     Dates: start: 20251013
  7. CLOZAPINE [Interacting]
     Active Substance: CLOZAPINE
     Dosage: 175 MILLIGRAM, QD (0-0-1)
     Route: 048
     Dates: start: 20251013
  8. CLOZAPINE [Interacting]
     Active Substance: CLOZAPINE
     Dosage: 175 MILLIGRAM, QD (0-0-1)
     Route: 048
     Dates: start: 20251013
  9. AMISULPRIDE [Interacting]
     Active Substance: AMISULPRIDE
     Indication: Product used for unknown indication
     Dosage: 1.5 DOSAGE FORM, QD (1.5-0-0)
     Dates: start: 20251031
  10. AMISULPRIDE [Interacting]
     Active Substance: AMISULPRIDE
     Dosage: 1.5 DOSAGE FORM, QD (1.5-0-0)
     Route: 048
     Dates: start: 20251031
  11. AMISULPRIDE [Interacting]
     Active Substance: AMISULPRIDE
     Dosage: 1.5 DOSAGE FORM, QD (1.5-0-0)
     Route: 048
     Dates: start: 20251031
  12. AMISULPRIDE [Interacting]
     Active Substance: AMISULPRIDE
     Dosage: 1.5 DOSAGE FORM, QD (1.5-0-0)
     Dates: start: 20251031
  13. SERTRALINE [Interacting]
     Active Substance: SERTRALINE HYDROCHLORIDE
     Indication: Product used for unknown indication
     Dosage: 1 DOSAGE FORM, QD (MORNING 1 TABLETS)
     Dates: start: 20250925
  14. SERTRALINE [Interacting]
     Active Substance: SERTRALINE HYDROCHLORIDE
     Dosage: 1 DOSAGE FORM, QD (MORNING 1 TABLETS)
     Route: 048
     Dates: start: 20250925
  15. SERTRALINE [Interacting]
     Active Substance: SERTRALINE HYDROCHLORIDE
     Dosage: 1 DOSAGE FORM, QD (MORNING 1 TABLETS)
     Route: 048
     Dates: start: 20250925
  16. SERTRALINE [Interacting]
     Active Substance: SERTRALINE HYDROCHLORIDE
     Dosage: 1 DOSAGE FORM, QD (MORNING 1 TABLETS)
     Dates: start: 20250925
  17. IBUPROFEN [Interacting]
     Active Substance: IBUPROFEN
     Indication: Pain
     Dosage: 1 DOSAGE FORM, PRN (IF NECESSARY, 1 PCS PER INTAKE)
  18. IBUPROFEN [Interacting]
     Active Substance: IBUPROFEN
     Dosage: 1 DOSAGE FORM, PRN (IF NECESSARY, 1 PCS PER INTAKE)
     Route: 048
  19. IBUPROFEN [Interacting]
     Active Substance: IBUPROFEN
     Dosage: 1 DOSAGE FORM, PRN (IF NECESSARY, 1 PCS PER INTAKE)
     Route: 048
  20. IBUPROFEN [Interacting]
     Active Substance: IBUPROFEN
     Dosage: 1 DOSAGE FORM, PRN (IF NECESSARY, 1 PCS PER INTAKE)
  21. LORAZEPAM [Interacting]
     Active Substance: LORAZEPAM
     Indication: Restlessness
     Dosage: 1 DOSAGE FORM, PRN (IF NECESSARY, 1 PCS PER INTAKE)
  22. LORAZEPAM [Interacting]
     Active Substance: LORAZEPAM
     Dosage: 1 DOSAGE FORM, PRN (IF NECESSARY, 1 PCS PER INTAKE)
     Route: 048
  23. LORAZEPAM [Interacting]
     Active Substance: LORAZEPAM
     Dosage: 1 DOSAGE FORM, PRN (IF NECESSARY, 1 PCS PER INTAKE)
     Route: 048
  24. LORAZEPAM [Interacting]
     Active Substance: LORAZEPAM
     Dosage: 1 DOSAGE FORM, PRN (IF NECESSARY, 1 PCS PER INTAKE)
  25. DIAZEPAM [Interacting]
     Active Substance: DIAZEPAM
     Indication: Restlessness
     Dosage: 5 MILLIGRAM, PRN (IF NECESSARY, 5MG PER INTAKE)
  26. DIAZEPAM [Interacting]
     Active Substance: DIAZEPAM
     Dosage: 5 MILLIGRAM, PRN (IF NECESSARY, 5MG PER INTAKE)
     Route: 048
  27. DIAZEPAM [Interacting]
     Active Substance: DIAZEPAM
     Dosage: 5 MILLIGRAM, PRN (IF NECESSARY, 5MG PER INTAKE)
     Route: 048
  28. DIAZEPAM [Interacting]
     Active Substance: DIAZEPAM
     Dosage: 5 MILLIGRAM, PRN (IF NECESSARY, 5MG PER INTAKE)
  29. HALOPERIDOL [Interacting]
     Active Substance: HALOPERIDOL
     Indication: Restlessness
     Dosage: 5 MILLIGRAM, PRN (IF NECESSARY)
  30. HALOPERIDOL [Interacting]
     Active Substance: HALOPERIDOL
     Dosage: 5 MILLIGRAM, PRN (IF NECESSARY)
     Route: 048
  31. HALOPERIDOL [Interacting]
     Active Substance: HALOPERIDOL
     Dosage: 5 MILLIGRAM, PRN (IF NECESSARY)
     Route: 048
  32. HALOPERIDOL [Interacting]
     Active Substance: HALOPERIDOL
     Dosage: 5 MILLIGRAM, PRN (IF NECESSARY)
  33. PROMETHAZINE [Interacting]
     Active Substance: PROMETHAZINE HYDROCHLORIDE
     Indication: Restlessness
     Dosage: 1 DOSAGE FORM, PRN (IF NECESSARY, 1 PCS PER INTAKE)
  34. PROMETHAZINE [Interacting]
     Active Substance: PROMETHAZINE HYDROCHLORIDE
     Dosage: 1 DOSAGE FORM, PRN (IF NECESSARY, 1 PCS PER INTAKE)
     Route: 048
  35. PROMETHAZINE [Interacting]
     Active Substance: PROMETHAZINE HYDROCHLORIDE
     Dosage: 1 DOSAGE FORM, PRN (IF NECESSARY, 1 PCS PER INTAKE)
     Route: 048
  36. PROMETHAZINE [Interacting]
     Active Substance: PROMETHAZINE HYDROCHLORIDE
     Dosage: 1 DOSAGE FORM, PRN (IF NECESSARY, 1 PCS PER INTAKE)
  37. POLYETHYLENE GLYCOLS [Interacting]
     Active Substance: POLYETHYLENE GLYCOLS
     Indication: Product used for unknown indication
     Dosage: 1 DOSAGE FORM, Q8H (MORNING/NOON/EVENING 1 SACHET 6 AM)
     Dates: start: 20250922
  38. POLYETHYLENE GLYCOLS [Interacting]
     Active Substance: POLYETHYLENE GLYCOLS
     Dosage: 1 DOSAGE FORM, Q8H (MORNING/NOON/EVENING 1 SACHET 6 AM)
     Route: 048
     Dates: start: 20250922
  39. POLYETHYLENE GLYCOLS [Interacting]
     Active Substance: POLYETHYLENE GLYCOLS
     Dosage: 1 DOSAGE FORM, Q8H (MORNING/NOON/EVENING 1 SACHET 6 AM)
     Route: 048
     Dates: start: 20250922
  40. POLYETHYLENE GLYCOLS [Interacting]
     Active Substance: POLYETHYLENE GLYCOLS
     Dosage: 1 DOSAGE FORM, Q8H (MORNING/NOON/EVENING 1 SACHET 6 AM)
     Dates: start: 20250922
  41. BIPERIDEN [Interacting]
     Active Substance: BIPERIDEN
     Indication: Extrapyramidal disorder
     Dosage: 1 DOSAGE FORM, PRN (IF NECESSARY, 1 PCS. PER INTAKE)
  42. BIPERIDEN [Interacting]
     Active Substance: BIPERIDEN
     Dosage: 1 DOSAGE FORM, PRN (IF NECESSARY, 1 PCS. PER INTAKE)
     Route: 048
  43. BIPERIDEN [Interacting]
     Active Substance: BIPERIDEN
     Dosage: 1 DOSAGE FORM, PRN (IF NECESSARY, 1 PCS. PER INTAKE)
     Route: 048
  44. BIPERIDEN [Interacting]
     Active Substance: BIPERIDEN
     Dosage: 1 DOSAGE FORM, PRN (IF NECESSARY, 1 PCS. PER INTAKE)
  45. BIPERIDEN [Interacting]
     Active Substance: BIPERIDEN
     Indication: Product used for unknown indication
     Dosage: 1 DOSAGE FORM, QD (1-0-0)
     Dates: start: 20250624
  46. BIPERIDEN [Interacting]
     Active Substance: BIPERIDEN
     Dosage: 1 DOSAGE FORM, QD (1-0-0)
     Route: 048
     Dates: start: 20250624
  47. BIPERIDEN [Interacting]
     Active Substance: BIPERIDEN
     Dosage: 1 DOSAGE FORM, QD (1-0-0)
     Route: 048
     Dates: start: 20250624
  48. BIPERIDEN [Interacting]
     Active Substance: BIPERIDEN
     Dosage: 1 DOSAGE FORM, QD (1-0-0)
     Dates: start: 20250624
  49. LACTULOSE [Interacting]
     Active Substance: LACTULOSE
     Indication: Constipation
     Dosage: 10 MILLILITER (10 ML PER APPLICATION)
     Route: 048
  50. LACTULOSE [Interacting]
     Active Substance: LACTULOSE
     Dosage: 10 MILLILITER (10 ML PER APPLICATION)
  51. LACTULOSE [Interacting]
     Active Substance: LACTULOSE
     Dosage: 10 MILLILITER (10 ML PER APPLICATION)
  52. LACTULOSE [Interacting]
     Active Substance: LACTULOSE
     Dosage: 10 MILLILITER (10 ML PER APPLICATION)
     Route: 048
  53. LACTULOSE [Interacting]
     Active Substance: LACTULOSE
     Dosage: 10 MILLILITER, Q8H (10-10-10 ML)
     Route: 048
     Dates: start: 20251028
  54. LACTULOSE [Interacting]
     Active Substance: LACTULOSE
     Dosage: 10 MILLILITER, Q8H (10-10-10 ML)
     Dates: start: 20251028
  55. LACTULOSE [Interacting]
     Active Substance: LACTULOSE
     Dosage: 10 MILLILITER, Q8H (10-10-10 ML)
     Dates: start: 20251028
  56. LACTULOSE [Interacting]
     Active Substance: LACTULOSE
     Dosage: 10 MILLILITER, Q8H (10-10-10 ML)
     Route: 048
     Dates: start: 20251028

REACTIONS (40)
  - Exophthalmos [Unknown]
  - Syncope [Unknown]
  - Angina pectoris [Unknown]
  - Seizure [Unknown]
  - Circulatory collapse [Unknown]
  - Loss of consciousness [Unknown]
  - Epilepsy [Unknown]
  - Foaming at mouth [Unknown]
  - Fear of death [Unknown]
  - Tremor [Unknown]
  - Human bite [Unknown]
  - Amnesia [Unknown]
  - Head discomfort [Unknown]
  - Screaming [Unknown]
  - Speech disorder [Unknown]
  - Headache [Unknown]
  - Abdominal discomfort [Unknown]
  - Pelvic pain [Unknown]
  - Pyrexia [Unknown]
  - Alopecia [Unknown]
  - Menstruation delayed [Unknown]
  - Uterine pain [Unknown]
  - Muscle twitching [Unknown]
  - Motor dysfunction [Unknown]
  - Dysphemia [Unknown]
  - Memory impairment [Unknown]
  - Posture abnormal [Unknown]
  - Dizziness [Unknown]
  - Stress [Unknown]
  - Weight increased [Unknown]
  - Constipation [Unknown]
  - Anxiety [Unknown]
  - Confusional state [Unknown]
  - Nausea [Unknown]
  - Tongue biting [Unknown]
  - Hyperacusis [Unknown]
  - Amenorrhoea [Unknown]
  - Contraindicated product administered [Unknown]
  - Circumstance or information capable of leading to medication error [Unknown]
  - Labelled drug-drug interaction issue [Unknown]
